FAERS Safety Report 8910621 (Version 1)
Quarter: 2012Q4

REPORT INFORMATION
  Report Type: Spontaneous
  Country: US (occurrence: None)
  Receive Date: 20121115
  Receipt Date: 20121115
  Transmission Date: 20130627
  Serious: Yes (Hospitalization)
  Sender: FDA-Public Use
  Company Number: None

PATIENT
  Age: 50 Year
  Sex: Female
  Weight: 54.43 kg

DRUGS (1)
  1. METHYLPREDNISOLONE [Suspect]
     Route: 042

REACTIONS (5)
  - Nausea [None]
  - Diarrhoea [None]
  - Dizziness [None]
  - Fatigue [None]
  - Headache [None]
